FAERS Safety Report 4612397-8 (Version None)
Quarter: 2005Q1

REPORT INFORMATION
  Report Type: 
  Country: None (occurrence: None)
  Receive Date: 20050316
  Receipt Date: 20050214
  Transmission Date: 20050727
  Serious: Yes (Other)
  Sender: FDA-Public Use
  Company Number: 212488

PATIENT
  Age: 45 Year
  Sex: Male

DRUGS (2)
  1. RAPTIVA [Suspect]
     Indication: PSORIASIS
     Dosage: 1 MG/KG, 1/WEEK, SUBCUTANEOUS
     Route: 058
     Dates: start: 20050121
  2. LIPITOR [Concomitant]

REACTIONS (1)
  - BLOOD TRIGLYCERIDES INCREASED [None]
